FAERS Safety Report 16420713 (Version 1)
Quarter: 2019Q2

REPORT INFORMATION
  Report Type: Report from Study
  Country: BR (occurrence: BR)
  Receive Date: 20190612
  Receipt Date: 20190612
  Transmission Date: 20190711
  Serious: Yes (Hospitalization, Other)
  Sender: FDA-Public Use
  Company Number: BR-JNJFOC-20190603816

PATIENT
  Age: 29 Year
  Sex: Male

DRUGS (8)
  1. BIO-MANGUINHOS, RECOMBINANT [Suspect]
     Active Substance: INFLIXIMAB
     Indication: CROHN^S DISEASE
     Route: 042
     Dates: start: 20150813
  2. BIO-MANGUINHOS, RECOMBINANT [Suspect]
     Active Substance: INFLIXIMAB
     Indication: CROHN^S DISEASE
     Route: 042
  3. AZATHIOPRINE. [Concomitant]
     Active Substance: AZATHIOPRINE
     Route: 065
  4. BIO-MANGUINHOS, RECOMBINANT [Suspect]
     Active Substance: INFLIXIMAB
     Indication: CROHN^S DISEASE
     Route: 042
     Dates: start: 20151203
  5. LEVOTHYROXINE. [Concomitant]
     Active Substance: LEVOTHYROXINE
     Route: 065
  6. BIO-MANGUINHOS, RECOMBINANT [Suspect]
     Active Substance: INFLIXIMAB
     Indication: CROHN^S DISEASE
     Route: 042
     Dates: start: 20151008
  7. BIO-MANGUINHOS, RECOMBINANT [Suspect]
     Active Substance: INFLIXIMAB
     Indication: CROHN^S DISEASE
     Route: 042
     Dates: start: 201701, end: 201710
  8. BIO-MANGUINHOS, RECOMBINANT [Suspect]
     Active Substance: INFLIXIMAB
     Indication: CROHN^S DISEASE
     Route: 042
     Dates: start: 20140324

REACTIONS (7)
  - Colostomy [Unknown]
  - Therapeutic procedure [Unknown]
  - Off label use [Unknown]
  - Intestinal resection [Not Recovered/Not Resolved]
  - Drug level decreased [Unknown]
  - Product use issue [Unknown]
  - Jejunostomy [Not Recovered/Not Resolved]

NARRATIVE: CASE EVENT DATE: 2017
